FAERS Safety Report 26174826 (Version 1)
Quarter: 2025Q4

REPORT INFORMATION
  Report Type: Spontaneous
  Country: AU (occurrence: AU)
  Receive Date: 20251218
  Receipt Date: 20251218
  Transmission Date: 20260118
  Serious: Yes (Other)
  Sender: DOUGLAS PHARMACEUTICALS
  Company Number: AU-PFIZERINC-PV202400073043

PATIENT
  Age: 67 Year
  Sex: Female

DRUGS (22)
  1. CLOZAPINE [Suspect]
     Active Substance: CLOZAPINE
     Dosage: UNK
     Dates: start: 20240501
  2. CLOZAPINE [Suspect]
     Active Substance: CLOZAPINE
     Dosage: UNK
     Dates: end: 20240603
  3. CLOZAPINE [Suspect]
     Active Substance: CLOZAPINE
     Dosage: 150 MG
     Dates: start: 20240604
  4. CLOZAPINE [Suspect]
     Active Substance: CLOZAPINE
     Dosage: 100 MG, 1X/DAY
     Dates: start: 20240508, end: 20240520
  5. CLOZAPINE [Suspect]
     Active Substance: CLOZAPINE
     Dosage: 250 MG, 1X/DAY
     Dates: start: 20240521, end: 20240527
  6. CLOZAPINE [Suspect]
     Active Substance: CLOZAPINE
     Dosage: 150 MG, 1X/DAY
     Dates: start: 20240528, end: 20240703
  7. CLOZAPINE [Suspect]
     Active Substance: CLOZAPINE
     Dosage: 175 MG, 1X/DAY
     Dates: start: 20240704, end: 20240709
  8. CLOZAPINE [Suspect]
     Active Substance: CLOZAPINE
     Dosage: 200 MG, 1X/DAY
     Dates: start: 20240710, end: 20240716
  9. CLOZAPINE [Suspect]
     Active Substance: CLOZAPINE
     Dosage: 225 MG, 1X/DAY
     Dates: start: 20240717, end: 20240816
  10. CLOZAPINE [Suspect]
     Active Substance: CLOZAPINE
     Dosage: 50 MG, 1X/DAY
     Dates: start: 20240821, end: 20240827
  11. CLOZAPINE [Suspect]
     Active Substance: CLOZAPINE
     Dosage: 200 MG, 1X/DAY
     Dates: start: 20240828, end: 20240903
  12. CLOZAPINE [Suspect]
     Active Substance: CLOZAPINE
     Dosage: 225 MG, 1X/DAY
     Dates: start: 20240904, end: 20240924
  13. CLOZAPINE [Suspect]
     Active Substance: CLOZAPINE
     Dosage: 225 MG, 1X/DAY
     Dates: start: 20241017, end: 20241022
  14. CLOZAPINE [Suspect]
     Active Substance: CLOZAPINE
     Dosage: 275 MG, 1X/DAY
     Dates: start: 20241106, end: 20241126
  15. CLOZAPINE [Suspect]
     Active Substance: CLOZAPINE
     Dosage: 275 MG, 1X/DAY
     Dates: start: 20241204, end: 20250107
  16. CLOZAPINE [Suspect]
     Active Substance: CLOZAPINE
     Dosage: 275 MG, 1X/DAY
     Dates: start: 20250401, end: 20250423
  17. CLOZAPINE [Suspect]
     Active Substance: CLOZAPINE
     Dosage: 300 MG, 1X/DAY
     Dates: start: 20250424, end: 20251201
  18. CLOZAPINE [Suspect]
     Active Substance: CLOZAPINE
     Dosage: 275 MG, 1X/DAY
     Dates: start: 20251202
  19. VERSACLOZ [Suspect]
     Active Substance: CLOZAPINE
     Dosage: 225 MG, 1X/DAY
     Dates: start: 20240925, end: 20241016
  20. VERSACLOZ [Suspect]
     Active Substance: CLOZAPINE
     Dosage: 275 MG, 1X/DAY
     Dates: start: 20241023, end: 20241105
  21. VERSACLOZ [Suspect]
     Active Substance: CLOZAPINE
     Dosage: 275 MG, 1X/DAY
     Dates: start: 20241127, end: 20241203
  22. VERSACLOZ [Suspect]
     Active Substance: CLOZAPINE
     Dosage: 275 MG, 1X/DAY
     Dates: start: 20250108, end: 20250331

REACTIONS (6)
  - Neutropenia [Recovered/Resolved]
  - Neutrophil count decreased [Recovered/Resolved]
  - White blood cell count decreased [Recovered/Resolved]
  - Therapy interrupted [Recovered/Resolved]
  - Off label use [Unknown]
  - Product use issue [Unknown]

NARRATIVE: CASE EVENT DATE: 20240604
